FAERS Safety Report 7091803-6 (Version None)
Quarter: 2010Q4

REPORT INFORMATION
  Report Type: 
  Country: None (occurrence: None)
  Receive Date: 20101101
  Receipt Date: 20101018
  Transmission Date: 20110411
  Serious: Yes (Death, Other)
  Sender: FDA-Public Use
  Company Number: OPER20100185

PATIENT
  Age: 20 Year
  Sex: Male

DRUGS (2)
  1. OPANA ER [Suspect]
     Indication: ARTHRALGIA
     Dosage: 30 MG
  2. XANAX [Suspect]
     Indication: PRODUCT USED FOR UNKNOWN INDICATION

REACTIONS (1)
  - DRUG ABUSE [None]
